FAERS Safety Report 6367713-6 (Version None)
Quarter: 2009Q3

REPORT INFORMATION
  Report Type: 
  Country: None (occurrence: None)
  Receive Date: 20090921
  Receipt Date: 20090908
  Transmission Date: 20100115
  Serious: Yes (Other)
  Sender: FDA-Public Use
  Company Number: GR-CVT-090599

PATIENT

DRUGS (10)
  1. RANEXA [Suspect]
     Indication: DRUG USE FOR UNKNOWN INDICATION
     Dosage: 375 MG, BID
     Route: 048
     Dates: start: 20090101, end: 20090101
  2. ISCOVER [Concomitant]
  3. ADALAT [Concomitant]
  4. MONOSORDIL [Concomitant]
  5. SALOSPIR [Concomitant]
  6. LEPUR [Concomitant]
  7. LOPRESOR                           /00376902/ [Concomitant]
  8. NEXIUM [Concomitant]
  9. GLUCOPHAGE [Concomitant]
  10. SOLOSA [Concomitant]

REACTIONS (2)
  - OEDEMA PERIPHERAL [None]
  - URINE OUTPUT DECREASED [None]
